FAERS Safety Report 8973990 (Version 1)
Quarter: 2012Q4

REPORT INFORMATION
  Report Type: 
  Country: US (occurrence: US)
  Receive Date: 20121218
  Receipt Date: 20121218
  Transmission Date: 20130627
  Serious: No
  Sender: FDA-Public Use
  Company Number: US-BRISTOL-MYERS SQUIBB COMPANY-16833667

PATIENT
  Sex: Male

DRUGS (1)
  1. ABILIFY [Suspect]
     Dosage: 2 months worth of Abilify 2 mg samples

REACTIONS (3)
  - Anxiety [Unknown]
  - Nausea [Unknown]
  - Eating disorder [Unknown]
